FAERS Safety Report 8828020 (Version 1)
Quarter: 2012Q4

REPORT INFORMATION
  Report Type: 
  Country: US (occurrence: US)
  Receive Date: 20121005
  Receipt Date: 20121005
  Transmission Date: 20130627
  Serious: Yes (Other)
  Sender: FDA-Public Use
  Company Number: US-AMGEN-USASP2012062787

PATIENT
  Age: 71 Year
  Sex: Female

DRUGS (4)
  1. ENBREL [Suspect]
     Indication: RHEUMATOID ARTHRITIS
     Dosage: 50 mg, qwk
     Route: 058
     Dates: start: 20041001
  2. METHOTREXATE [Concomitant]
     Dosage: UNK
     Dates: start: 201012, end: 201103
  3. PREDNISONE [Concomitant]
     Dosage: 4 UNK, UNK
     Dates: start: 201109
  4. PREDNISONE [Concomitant]
     Dosage: 8 mg, UNK

REACTIONS (2)
  - Alopecia [Not Recovered/Not Resolved]
  - Urinary incontinence [Not Recovered/Not Resolved]
